FAERS Safety Report 13264660 (Version 7)
Quarter: 2019Q2

REPORT INFORMATION
  Report Type: Report from Study
  Country: US (occurrence: US)
  Receive Date: 20170223
  Receipt Date: 20190506
  Transmission Date: 20190711
  Serious: Yes (Hospitalization, Other)
  Sender: FDA-Public Use
  Company Number: US-SA-2016SA225080

PATIENT
  Age: 39 Year
  Sex: Female

DRUGS (2)
  1. LEMTRADA [Suspect]
     Active Substance: ALEMTUZUMAB
     Indication: MULTIPLE SCLEROSIS
     Dosage: 12 MG,QD
     Route: 041
     Dates: start: 20161205, end: 20161209
  2. LEMTRADA [Suspect]
     Active Substance: ALEMTUZUMAB
     Indication: RELAPSING-REMITTING MULTIPLE SCLEROSIS

REACTIONS (20)
  - Arthralgia [Recovered/Resolved]
  - Rash papular [Recovered/Resolved]
  - Staphylococcal infection [Recovered/Resolved]
  - Epistaxis [Recovered/Resolved]
  - Headache [Recovered/Resolved]
  - Furuncle [Unknown]
  - Pruritus [Not Recovered/Not Resolved]
  - Lung disorder [Not Recovered/Not Resolved]
  - Laboratory test abnormal [Not Recovered/Not Resolved]
  - Platelet disorder [Not Recovered/Not Resolved]
  - Staphylococcal infection [Unknown]
  - Renal function test abnormal [Not Recovered/Not Resolved]
  - Endocarditis [Recovered/Resolved]
  - Device occlusion [Not Recovered/Not Resolved]
  - Gingival bleeding [Recovered/Resolved]
  - Thrombosis [Unknown]
  - White blood cell count abnormal [Not Recovered/Not Resolved]
  - Cellulitis [Recovered/Resolved]
  - Sepsis [Unknown]
  - Renal failure [Not Recovered/Not Resolved]

NARRATIVE: CASE EVENT DATE: 201612
